FAERS Safety Report 8000318-X (Version None)
Quarter: 2011Q4

REPORT INFORMATION
  Report Type: 
  Country: None (occurrence: None)
  Receive Date: 20111222
  Receipt Date: 20111214
  Transmission Date: 20120403
  Serious: Yes (Other)
  Sender: FDA-Public Use
  Company Number: US-JNJFOC-20111206589

PATIENT
  Sex: Female

DRUGS (3)
  1. HYDROCODONE [Concomitant]
     Indication: PAIN
     Route: 065
  2. IBUPROFEN [Concomitant]
     Indication: PAIN
     Route: 065
  3. REMICADE [Suspect]
     Indication: RHEUMATOID ARTHRITIS
     Route: 042
     Dates: start: 20050101

REACTIONS (3)
  - SMOOTH MUSCLE ANTIBODY [None]
  - CYST [None]
  - LIVER FUNCTION TEST ABNORMAL [None]
